FAERS Safety Report 17348262 (Version 2)
Quarter: 2020Q1

REPORT INFORMATION
  Report Type: Spontaneous
  Country: US (occurrence: US)
  Receive Date: 20200130
  Receipt Date: 20200212
  Transmission Date: 20200409
  Serious: Yes (Other)
  Sender: FDA-Public Use
  Company Number: US-PFIZER INC-2020039058

PATIENT
  Age: 57 Year
  Sex: Female

DRUGS (1)
  1. IBRANCE [Suspect]
     Active Substance: PALBOCICLIB
     Indication: BREAST CANCER METASTATIC
     Dosage: 125 MG, CYCLIC ( TAKEN 1 CAPSULE 125 MG BY MOUTH DAILY FROM 21 DAYS ON + 7 DAYS OFF )
     Route: 048

REACTIONS (2)
  - Mastitis [Not Recovered/Not Resolved]
  - Malaise [Not Recovered/Not Resolved]
